FAERS Safety Report 8891410 (Version 1)
Quarter: 2012Q4

REPORT INFORMATION
  Report Type: Spontaneous
  Country: US (occurrence: None)
  Receive Date: 20121105
  Receipt Date: 20121105
  Transmission Date: 20130627
  Serious: Yes (Life-Threatening, Hospitalization)
  Sender: FDA-Public Use
  Company Number: None

PATIENT
  Age: 77 Year
  Sex: Male
  Weight: 81.4 kg

DRUGS (1)
  1. WARFARIN [Suspect]
     Indication: ATRIAL FIBRILLATION
     Route: 048
     Dates: start: 19990630, end: 20120903

REACTIONS (5)
  - International normalised ratio increased [None]
  - Diverticulum [None]
  - Large intestine polyp [None]
  - Haemorrhoids [None]
  - Gastric haemorrhage [None]
